FAERS Safety Report 8581836-2 (Version None)
Quarter: 2012Q3

REPORT INFORMATION
  Report Type: 
  Country: None (occurrence: None)
  Receive Date: 20120809
  Receipt Date: 20120730
  Transmission Date: 20120928
  Serious: Yes (Other)
  Sender: FDA-Public Use
  Company Number: BR-SANOFI-AVENTIS-2012SA055378

PATIENT
  Age: 64 Year
  Sex: Female

DRUGS (5)
  1. MELOXICAM [Concomitant]
  2. CHLOROQUINE PHOSPHATE [Suspect]
     Indication: RHEUMATOID ARTHRITIS
     Route: 065
  3. PREDNISONE TAB [Concomitant]
  4. ASPIRIN [Concomitant]
  5. METHOTREXATE [Concomitant]

REACTIONS (6)
  - BLINDNESS [None]
  - MUCOSAL PIGMENTATION [None]
  - ORAL DISORDER [None]
  - TONGUE PIGMENTATION [None]
  - VISION BLURRED [None]
  - GINGIVAL HYPERPIGMENTATION [None]
